FAERS Safety Report 7210457-9 (Version None)
Quarter: 2011Q1

REPORT INFORMATION
  Report Type: 
  Country: None (occurrence: None)
  Receive Date: 20110105
  Receipt Date: 20101230
  Transmission Date: 20110831
  Serious: Yes (Other)
  Sender: FDA-Public Use
  Company Number: US-AMGEN-USASP2010012425

PATIENT

DRUGS (1)
  1. ENBREL [Suspect]
     Indication: ANKYLOSING SPONDYLITIS
     Dates: start: 20100813

REACTIONS (4)
  - LACRIMATION INCREASED [None]
  - IRITIS [None]
  - OROPHARYNGEAL PAIN [None]
  - RHINORRHOEA [None]
